FAERS Safety Report 9321389 (Version 1)
Quarter: 2013Q2

REPORT INFORMATION
  Report Type: Spontaneous
  Country: US (occurrence: US)
  Receive Date: 20130531
  Receipt Date: 20130531
  Transmission Date: 20140414
  Serious: Yes (Other)
  Sender: FDA-Public Use
  Company Number: US-FRI-1000045429

PATIENT
  Sex: Female

DRUGS (8)
  1. CELEXA [Suspect]
     Dates: end: 20130403
  2. LEXAPRO [Suspect]
     Dosage: 10 MG
     Dates: start: 20130410
  3. HUMIRA [Suspect]
     Indication: CROHN^S DISEASE
     Dosage: 40 MG
     Dates: start: 20130215
  4. LISINOPRIL [Concomitant]
     Dosage: 10/12.5MG
  5. LISINOPRIL [Concomitant]
  6. CARTIA [Concomitant]
     Indication: BLOOD PRESSURE
     Dosage: 180 MG
  7. ASACOL [Concomitant]
     Indication: CROHN^S DISEASE
     Dosage: 6 DOSAGE FORMS
  8. DIPHENHYDRAMINE [Concomitant]
     Indication: INSOMNIA
     Dosage: 25 MG

REACTIONS (4)
  - Drug ineffective [Unknown]
  - Panic attack [Recovered/Resolved]
  - Haematochezia [Unknown]
  - Crohn^s disease [Unknown]
